FAERS Safety Report 18628038 (Version 2)
Quarter: 2020Q4

REPORT INFORMATION
  Report Type: Other
  Country: GB (occurrence: GB)
  Receive Date: 20201217
  Receipt Date: 20201228
  Transmission Date: 20210114
  Serious: Yes (Hospitalization, Other)
  Sender: FDA-Public Use
  Company Number: GB-STRIDES ARCOLAB LIMITED-2020SP015509

PATIENT
  Age: 39 Year
  Sex: Male

DRUGS (11)
  1. PREDNISOLONE. [Suspect]
     Active Substance: PREDNISOLONE
     Indication: STATUS EPILEPTICUS
     Dosage: HIGH DOSE PREDNISOLONE
     Route: 065
  2. THIOPENTONE [THIOPENTAL] [Suspect]
     Active Substance: THIOPENTAL
     Indication: STATUS EPILEPTICUS
     Dosage: 4.8 MILLIGRAM/KILOGRAM PER HOUR, UP TO 4,80 MG/KG/H
     Route: 042
     Dates: start: 20161114, end: 20170109
  3. SODIUM VALPROATE [Suspect]
     Active Substance: VALPROATE SODIUM
     Indication: STATUS EPILEPTICUS
     Dosage: UNK
     Route: 065
  4. MIDAZOLAM. [Suspect]
     Active Substance: MIDAZOLAM
     Indication: STATUS EPILEPTICUS
     Dosage: 20 MILLIGRAM PER HOUR,ALL SEDATION STOPPED 28/01
     Route: 042
  5. PROPOFOL. [Suspect]
     Active Substance: PROPOFOL
     Indication: STATUS EPILEPTICUS
     Dosage: 1 MILLIGRAM/KILOGRAM PER HOUR ,ALL SEDATION STOPPED 28/01
     Route: 042
  6. PHENYTOIN. [Suspect]
     Active Substance: PHENYTOIN
     Indication: STATUS EPILEPTICUS
     Dosage: UNK
     Route: 065
  7. CLONAZEPAM. [Suspect]
     Active Substance: CLONAZEPAM
     Indication: STATUS EPILEPTICUS
     Dosage: UNK
     Route: 065
  8. FENTANYL. [Suspect]
     Active Substance: FENTANYL
     Indication: STATUS EPILEPTICUS
     Dosage: 100 MICROGRAM PER HOUR, ALL SEDATION STOPPED 28/01
     Route: 042
  9. LEVETIRACETAM. [Suspect]
     Active Substance: LEVETIRACETAM
     Indication: STATUS EPILEPTICUS
     Dosage: UNK
     Route: 065
  10. TOPIRAMATE. [Suspect]
     Active Substance: TOPIRAMATE
     Indication: STATUS EPILEPTICUS
     Dosage: UNK
     Route: 065
  11. PHENOBARBITONE [PHENOBARBITAL] [Suspect]
     Active Substance: PHENOBARBITAL
     Indication: STATUS EPILEPTICUS
     Dosage: UNK
     Route: 065

REACTIONS (12)
  - Metabolic acidosis [Unknown]
  - Coagulopathy [Unknown]
  - Autonomic nervous system imbalance [Unknown]
  - Malabsorption [Unknown]
  - Acute kidney injury [Unknown]
  - Pseudomembranous colitis [Unknown]
  - Colitis ischaemic [Unknown]
  - Deep vein thrombosis [Unknown]
  - Intensive care unit acquired weakness [Unknown]
  - Infection [Unknown]
  - Hepatitis fulminant [Unknown]
  - Abdominal wall haematoma [Unknown]
